FAERS Safety Report 8844820 (Version 1)
Quarter: 2012Q4

REPORT INFORMATION
  Report Type: 
  Country: US (occurrence: US)
  Receive Date: 20121017
  Receipt Date: 20121017
  Transmission Date: 20130627
  Serious: No
  Sender: FDA-Public Use
  Company Number: US-VERTEX PHARMACEUTICAL INC.-2012-022503

PATIENT
  Age: 50 Year
  Sex: Female

DRUGS (4)
  1. VX-950 [Suspect]
     Indication: HEPATITIS C
     Dosage: 750 mg, tid
     Route: 048
     Dates: start: 20120917
  2. PEGASYS [Suspect]
     Indication: HEPATITIS C
     Dosage: 180 ?g, UNK
     Dates: start: 20120917
  3. RIBAVIRIN [Concomitant]
     Indication: HEPATITIS C
     Dosage: 200 mg, UNK
     Dates: start: 20120917
  4. ADVIL                              /00044201/ [Concomitant]
     Dosage: 200 mg, UNK

REACTIONS (3)
  - Constipation [Recovered/Resolved]
  - Rash [Not Recovered/Not Resolved]
  - Dysgeusia [Unknown]
